FAERS Safety Report 7069936-X (Version None)
Quarter: 2010Q4

REPORT INFORMATION
  Report Type: 
  Country: None (occurrence: None)
  Receive Date: 20101028
  Receipt Date: 20100831
  Transmission Date: 20110411
  Serious: No
  Sender: FDA-Public Use
  Company Number: US-WYE-H16523410

PATIENT
  Age: 3 Year
  Sex: Male
  Weight: 13.62 kg

DRUGS (1)
  1. CHILDREN'S ADVIL [Suspect]
     Indication: PYREXIA
     Dosage: 1/2 TSP ONCE
     Route: 048
     Dates: start: 20100714, end: 20100714

REACTIONS (2)
  - DYSGEUSIA [None]
  - ORAL DISCOMFORT [None]
